FAERS Safety Report 6357290-8 (Version None)
Quarter: 2009Q3

REPORT INFORMATION
  Report Type: 
  Country: None (occurrence: None)
  Receive Date: 20090916
  Receipt Date: 20090904
  Transmission Date: 20100115
  Serious: Yes (Other)
  Sender: FDA-Public Use
  Company Number: PHHY2009CA38344

PATIENT
  Sex: Female

DRUGS (4)
  1. DIOVAN [Suspect]
     Dosage: 1 TABLET (80 MG) PER DAY
     Route: 048
     Dates: start: 20090901
  2. DIGOXIN [Concomitant]
  3. DISOPYRAMIDE [Concomitant]
  4. ATIVAN [Concomitant]

REACTIONS (3)
  - ARRHYTHMIA [None]
  - BLOOD PRESSURE INCREASED [None]
  - RENAL IMPAIRMENT [None]
